FAERS Safety Report 18898814 (Version 1)
Quarter: 2021Q1

REPORT INFORMATION
  Report Type: Spontaneous
  Country: GB (occurrence: GB)
  Receive Date: 20210216
  Receipt Date: 20210216
  Transmission Date: 20210420
  Serious: Yes (Other)
  Sender: FDA-Public Use
  Company Number: GB-TEVA-2021-GB-1876999

PATIENT
  Age: 51 Year
  Sex: Male
  Weight: 63.5 kg

DRUGS (2)
  1. ALLOPURINOL. [Concomitant]
     Active Substance: ALLOPURINOL
     Indication: ILL-DEFINED DISORDER
  2. LEVOFLOXACIN HEMIHYDRATE [Suspect]
     Active Substance: LEVOFLOXACIN
     Indication: PROSTATE INFECTION
     Dosage: 500 MILLIGRAM DAILY; FOR 28 DAYS
     Route: 048
     Dates: start: 20200721, end: 20200731

REACTIONS (1)
  - Tendon injury [Recovered/Resolved with Sequelae]

NARRATIVE: CASE EVENT DATE: 20200727
